FAERS Safety Report 19826404 (Version 11)
Quarter: 2022Q2

REPORT INFORMATION
  Report Type: Report from Study
  Country: CL (occurrence: CL)
  Receive Date: 20210913
  Receipt Date: 20220413
  Transmission Date: 20220721
  Serious: Yes (Hospitalization, Other)
  Sender: FDA-Public Use
  Company Number: CL-TAKEDA-2021TUS046405

PATIENT
  Age: 3 Year
  Sex: Male

DRUGS (29)
  1. ANTI-INHIBITOR COAGULANT COMPLEX [Suspect]
     Active Substance: ANTI-INHIBITOR COAGULANT COMPLEX
     Indication: Factor VIII deficiency
     Dosage: UNK, 5/WEEK
     Route: 042
  2. ANTI-INHIBITOR COAGULANT COMPLEX [Suspect]
     Active Substance: ANTI-INHIBITOR COAGULANT COMPLEX
     Indication: Prophylaxis
     Dosage: UNK, 5/WEEK
     Route: 042
  3. ANTI-INHIBITOR COAGULANT COMPLEX [Suspect]
     Active Substance: ANTI-INHIBITOR COAGULANT COMPLEX
     Indication: Haemophilia
     Dosage: UNK, 5/WEEK
     Route: 042
  4. ANTI-INHIBITOR COAGULANT COMPLEX [Suspect]
     Active Substance: ANTI-INHIBITOR COAGULANT COMPLEX
     Dosage: UNK, 5/WEEK
     Route: 042
  5. ANTI-INHIBITOR COAGULANT COMPLEX [Suspect]
     Active Substance: ANTI-INHIBITOR COAGULANT COMPLEX
     Dosage: UNK, 5/WEEK
     Route: 042
  6. ANTI-INHIBITOR COAGULANT COMPLEX [Suspect]
     Active Substance: ANTI-INHIBITOR COAGULANT COMPLEX
     Dosage: UNK, 5/WEEK
     Route: 042
  7. ANTI-INHIBITOR COAGULANT COMPLEX [Suspect]
     Active Substance: ANTI-INHIBITOR COAGULANT COMPLEX
     Dosage: UNK, 5/WEEK
     Route: 042
  8. ANTI-INHIBITOR COAGULANT COMPLEX [Suspect]
     Active Substance: ANTI-INHIBITOR COAGULANT COMPLEX
     Dosage: 1500 INTERNATIONAL UNIT
     Route: 042
  9. ANTI-INHIBITOR COAGULANT COMPLEX [Suspect]
     Active Substance: ANTI-INHIBITOR COAGULANT COMPLEX
     Dosage: UNK, 5/WEEK
     Route: 042
  10. ANTI-INHIBITOR COAGULANT COMPLEX [Suspect]
     Active Substance: ANTI-INHIBITOR COAGULANT COMPLEX
     Dosage: 1000 INTERNATIONAL UNIT
     Route: 065
  11. ANTI-INHIBITOR COAGULANT COMPLEX [Suspect]
     Active Substance: ANTI-INHIBITOR COAGULANT COMPLEX
     Dosage: UNK
     Route: 065
     Dates: start: 20210719
  12. ANTI-INHIBITOR COAGULANT COMPLEX [Suspect]
     Active Substance: ANTI-INHIBITOR COAGULANT COMPLEX
     Dosage: UNK
     Route: 065
     Dates: start: 20210719
  13. ANTI-INHIBITOR COAGULANT COMPLEX [Suspect]
     Active Substance: ANTI-INHIBITOR COAGULANT COMPLEX
     Dosage: UNK
     Route: 065
     Dates: start: 20210902
  14. ANTI-INHIBITOR COAGULANT COMPLEX [Suspect]
     Active Substance: ANTI-INHIBITOR COAGULANT COMPLEX
     Dosage: UNK
     Route: 065
     Dates: start: 20210902
  15. ANTI-INHIBITOR COAGULANT COMPLEX [Suspect]
     Active Substance: ANTI-INHIBITOR COAGULANT COMPLEX
     Dosage: UNK
     Route: 065
     Dates: start: 20210915
  16. ANTI-INHIBITOR COAGULANT COMPLEX [Suspect]
     Active Substance: ANTI-INHIBITOR COAGULANT COMPLEX
     Dosage: UNK
     Route: 065
     Dates: start: 20210915
  17. ANTI-INHIBITOR COAGULANT COMPLEX [Suspect]
     Active Substance: ANTI-INHIBITOR COAGULANT COMPLEX
     Dosage: UNK
     Route: 065
     Dates: start: 20211020
  18. ANTI-INHIBITOR COAGULANT COMPLEX [Suspect]
     Active Substance: ANTI-INHIBITOR COAGULANT COMPLEX
     Dosage: UNK
     Route: 065
     Dates: start: 20211021
  19. ANTI-INHIBITOR COAGULANT COMPLEX [Suspect]
     Active Substance: ANTI-INHIBITOR COAGULANT COMPLEX
     Dosage: UNK
     Route: 065
     Dates: start: 20211124
  20. ANTI-INHIBITOR COAGULANT COMPLEX [Suspect]
     Active Substance: ANTI-INHIBITOR COAGULANT COMPLEX
     Dosage: UNK
     Route: 065
     Dates: start: 20211206
  21. ANTI-INHIBITOR COAGULANT COMPLEX [Suspect]
     Active Substance: ANTI-INHIBITOR COAGULANT COMPLEX
     Dosage: UNK
     Route: 065
     Dates: start: 20211217
  22. ANTI-INHIBITOR COAGULANT COMPLEX [Suspect]
     Active Substance: ANTI-INHIBITOR COAGULANT COMPLEX
     Dosage: UNK
     Route: 065
     Dates: start: 20211221
  23. ANTI-INHIBITOR COAGULANT COMPLEX [Suspect]
     Active Substance: ANTI-INHIBITOR COAGULANT COMPLEX
     Dosage: UNK
     Route: 065
     Dates: start: 20211225
  24. ANTI-INHIBITOR COAGULANT COMPLEX [Suspect]
     Active Substance: ANTI-INHIBITOR COAGULANT COMPLEX
     Dosage: UNK
     Route: 065
     Dates: start: 20211229
  25. ANTI-INHIBITOR COAGULANT COMPLEX [Suspect]
     Active Substance: ANTI-INHIBITOR COAGULANT COMPLEX
     Dosage: 1500 INTERNATIONAL UNIT, 5/WEEK
     Route: 042
  26. ANTIHEMOPHILIC FACTOR, HUMAN RECOMBINANT [Suspect]
     Active Substance: ANTIHEMOPHILIC FACTOR, HUMAN RECOMBINANT
     Indication: Immune tolerance induction
     Dosage: UNK
     Route: 005
  27. ANTIHEMOPHILIC FACTOR, HUMAN RECOMBINANT [Suspect]
     Active Substance: ANTIHEMOPHILIC FACTOR, HUMAN RECOMBINANT
     Indication: Immune tolerance induction
     Dosage: UNK
     Route: 005
  28. ANTIHEMOPHILIC FACTOR, HUMAN RECOMBINANT [Suspect]
     Active Substance: ANTIHEMOPHILIC FACTOR, HUMAN RECOMBINANT
     Indication: Immune tolerance induction
     Dosage: UNK
     Route: 005
  29. OCTANATE [Concomitant]
     Active Substance: ANTIHEMOPHILIC FACTOR HUMAN
     Indication: Factor VIII deficiency
     Dosage: UNK
     Route: 065

REACTIONS (31)
  - Device related infection [Recovering/Resolving]
  - Bacteraemia [Recovering/Resolving]
  - Haemorrhage [Recovering/Resolving]
  - Wound haemorrhage [Recovering/Resolving]
  - Syncope [Recovered/Resolved]
  - Unevaluable event [Recovering/Resolving]
  - Haemarthrosis [Recovering/Resolving]
  - Arthralgia [Recovering/Resolving]
  - Irritability [Recovering/Resolving]
  - Gait disturbance [Recovering/Resolving]
  - Catheter site erythema [Unknown]
  - Catheter site bruise [Unknown]
  - Joint swelling [Recovering/Resolving]
  - Body temperature increased [Recovering/Resolving]
  - Discomfort [Recovering/Resolving]
  - Arthropathy [Recovering/Resolving]
  - Joint injury [Recovering/Resolving]
  - Joint warmth [Recovering/Resolving]
  - Joint range of motion decreased [Recovering/Resolving]
  - Wound [Recovering/Resolving]
  - Infusion site discharge [Recovering/Resolving]
  - Disorientation [Recovered/Resolved]
  - Stress [Recovered/Resolved]
  - Feeling cold [Recovered/Resolved]
  - Pyrexia [Recovered/Resolved]
  - Nausea [Recovered/Resolved]
  - Malaise [Recovered/Resolved]
  - Vomiting [Recovered/Resolved]
  - Off label use [Unknown]
  - Incorrect dose administered [Unknown]
  - Patient uncooperative [Unknown]

NARRATIVE: CASE EVENT DATE: 20210719
